FAERS Safety Report 24003969 (Version 4)
Quarter: 2024Q4

REPORT INFORMATION
  Report Type: Report from Study
  Country: CA (occurrence: CA)
  Receive Date: 20240624
  Receipt Date: 20241014
  Transmission Date: 20250115
  Serious: Yes (Hospitalization, Other)
  Sender: RECORDATI
  Company Number: CA-ORPHANEU-2024004643

PATIENT

DRUGS (4)
  1. SIGNIFOR LAR [Suspect]
     Active Substance: PASIREOTIDE PAMOATE
     Indication: Insulinoma
     Dosage: UNK
  2. SIGNIFOR LAR [Suspect]
     Active Substance: PASIREOTIDE PAMOATE
     Indication: Off label use
     Dosage: 40 MG EVERY 28 DAYS
     Dates: start: 20240322, end: 2024
  3. SIGNIFOR LAR [Suspect]
     Active Substance: PASIREOTIDE PAMOATE
     Dosage: 20 MG, UNK (STAT/ IMMEDIATELY)
     Dates: start: 20240815, end: 2024
  4. SIGNIFOR LAR [Suspect]
     Active Substance: PASIREOTIDE PAMOATE
     Dosage: 60 MG EVERY 28 DAYS
     Route: 030
     Dates: start: 20241003

REACTIONS (3)
  - Medical device site infection [Recovering/Resolving]
  - Hypoglycaemia [Not Recovered/Not Resolved]
  - Off label use [Recovered/Resolved]

NARRATIVE: CASE EVENT DATE: 20230801
